FAERS Safety Report 9264580 (Version 1)
Quarter: 2013Q2

REPORT INFORMATION
  Report Type: Spontaneous
  Country: US (occurrence: US)
  Receive Date: 20130501
  Receipt Date: 20130501
  Transmission Date: 20140414
  Serious: Yes (Hospitalization)
  Sender: FDA-Public Use
  Company Number: US-BIOGENIDEC-2013BI037425

PATIENT
  Age: 49 Year
  Sex: Female

DRUGS (1)
  1. AVONEX [Suspect]
     Indication: MULTIPLE SCLEROSIS
     Route: 030
     Dates: start: 20120512, end: 20130416

REACTIONS (9)
  - Arthritis infective [Recovered/Resolved]
  - Bronchitis [Recovered/Resolved]
  - Fear [Recovered/Resolved]
  - Biopsy [Recovered/Resolved]
  - Central nervous system lesion [Not Recovered/Not Resolved]
  - Hypoaesthesia [Unknown]
  - General symptom [Recovered/Resolved]
  - Confusional state [Recovered/Resolved]
  - Influenza like illness [Recovered/Resolved]
